FAERS Safety Report 4749324-9 (Version None)
Quarter: 2005Q3

REPORT INFORMATION
  Report Type: 
  Country: None (occurrence: None)
  Receive Date: 20050812
  Receipt Date: 20050607
  Transmission Date: 20060218
  Serious: Yes (Other)
  Sender: FDA-Public Use
  Company Number: 407219

PATIENT
  Age: 50 Year
  Sex: Female
  Weight: 47.6 kg

DRUGS (3)
  1. PEGASYS [Suspect]
     Indication: HEPATITIS C
     Dosage: 180 MCG 1 PER WEEK SUBCUTANEOUS
     Route: 058
     Dates: start: 20050509, end: 20050523
  2. RIBASPHERE [Suspect]
     Indication: HEPATITIS C
     Dosage: 400 MG 2 PER DAY ORAL
     Route: 048
     Dates: start: 20050509, end: 20050603
  3. COPEGUS [Suspect]
     Dosage: ORAL
     Route: 048
     Dates: start: 20050503, end: 20050517

REACTIONS (1)
  - WHITE BLOOD CELL DISORDER [None]
